FAERS Safety Report 14225929 (Version 3)
Quarter: 2018Q2

REPORT INFORMATION
  Report Type: Spontaneous
  Country: US (occurrence: US)
  Receive Date: 20171127
  Receipt Date: 20180413
  Transmission Date: 20180711
  Serious: Yes (Other)
  Sender: FDA-Public Use
  Company Number: US-TEVA-811172USA

PATIENT
  Sex: Female

DRUGS (1)
  1. BUPROPION. [Suspect]
     Active Substance: BUPROPION
     Dosage: 300
     Dates: start: 20170919

REACTIONS (6)
  - Suicidal ideation [Unknown]
  - Depression [Unknown]
  - Product substitution issue [Unknown]
  - Irritability [Unknown]
  - Withdrawal syndrome [Unknown]
  - Fatigue [Unknown]

NARRATIVE: CASE EVENT DATE: 20170919
